FAERS Safety Report 20616877 (Version 1)
Quarter: 2022Q1

REPORT INFORMATION
  Report Type: Report from Study
  Country: FR (occurrence: FR)
  Receive Date: 20220321
  Receipt Date: 20220321
  Transmission Date: 20220424
  Serious: Yes (Other)
  Sender: FDA-Public Use
  Company Number: FR-ALNYLAM PHARMACEUTICALS, INC.-ALN-2021-002120

PATIENT

DRUGS (3)
  1. GIVLAARI [Suspect]
     Active Substance: GIVOSIRAN SODIUM
     Indication: Product used for unknown indication
     Route: 065
  2. VENLAFAXINE [Concomitant]
     Active Substance: VENLAFAXINE HYDROCHLORIDE
     Indication: Hypertension
     Route: 065
  3. ZOPICLONE [Concomitant]
     Active Substance: ZOPICLONE
     Indication: Hypertension
     Route: 065

REACTIONS (18)
  - Headache [Recovering/Resolving]
  - Weight increased [Recovering/Resolving]
  - Myalgia [Unknown]
  - Fluid retention [Unknown]
  - Sleep disorder [Unknown]
  - Tendonitis [Unknown]
  - Faeces pale [Unknown]
  - Abdominal distension [Recovering/Resolving]
  - Cough [Recovering/Resolving]
  - Swelling [Recovering/Resolving]
  - Neck pain [Recovering/Resolving]
  - Muscle spasms [Recovering/Resolving]
  - Depression [Recovering/Resolving]
  - Porphyria acute [Unknown]
  - Urine porphobilinogen increased [Unknown]
  - Urine delta aminolevulinate increased [Unknown]
  - Abdominal pain [Unknown]
  - Inappropriate schedule of product administration [Unknown]

NARRATIVE: CASE EVENT DATE: 20211001
